FAERS Safety Report 20672895 (Version 1)
Quarter: 2022Q2

REPORT INFORMATION
  Report Type: Other
  Country: None (occurrence: JP)
  Receive Date: 20220405
  Receipt Date: 20220405
  Transmission Date: 20220721
  Serious: Yes (Hospitalization)
  Sender: FDA-Public Use
  Company Number: JP-Ajanta Pharma USA Inc.-2127387

PATIENT
  Age: 54 Year
  Sex: Female
  Weight: 39.409 kg

DRUGS (4)
  1. SILDENAFIL CITRATE [Suspect]
     Active Substance: SILDENAFIL CITRATE
     Indication: Pulmonary hypertension
  2. EPOPROSTENOL [Suspect]
     Active Substance: EPOPROSTENOL
  3. MACITENTAN [Suspect]
     Active Substance: MACITENTAN
  4. SELEXIPAG [Concomitant]
     Active Substance: SELEXIPAG

REACTIONS (2)
  - Ascites [Recovered/Resolved]
  - Pulmonary oedema [Unknown]
